FAERS Safety Report 24107466 (Version 1)
Quarter: 2024Q3

REPORT INFORMATION
  Report Type: Report from Study
  Country: US (occurrence: None)
  Receive Date: 20240718
  Receipt Date: 20240718
  Transmission Date: 20241017
  Serious: Yes (Other)
  Sender: ASTRAZENECA
  Company Number: 2021A289272

PATIENT
  Sex: Female

DRUGS (1)
  1. CALQUENCE [Suspect]
     Active Substance: ACALABRUTINIB
     Indication: Chronic lymphocytic leukaemia
     Route: 048

REACTIONS (7)
  - Hepatic enzyme increased [Unknown]
  - Myalgia [Unknown]
  - Back pain [Unknown]
  - Decreased activity [Unknown]
  - Blood pressure decreased [Unknown]
  - Fatigue [Unknown]
  - Limb discomfort [Unknown]
